FAERS Safety Report 8186877-5 (Version None)
Quarter: 2012Q1

REPORT INFORMATION
  Report Type: 
  Country: None (occurrence: None)
  Receive Date: 20120302
  Receipt Date: 20120224
  Transmission Date: 20120608
  Serious: Yes (Other)
  Sender: FDA-Public Use
  Company Number: ADR-2012-00429

PATIENT
  Age: 11 Year
  Sex: Male

DRUGS (2)
  1. LIORESAL [Suspect]
     Indication: MUSCLE SPASTICITY
     Dosage: 407.4 MCG/DAY
     Route: 037
  2. LIORESAL [Suspect]
     Indication: CEREBRAL PALSY
     Dosage: 407.4 MCG/DAY
     Route: 037

REACTIONS (14)
  - PRURITUS [None]
  - HYPOTENSION [None]
  - BURNING SENSATION [None]
  - MYOCLONUS [None]
  - MUSCLE TWITCHING [None]
  - ASTHENIA [None]
  - DECREASED APPETITE [None]
  - DIZZINESS [None]
  - PARAESTHESIA [None]
  - BACK PAIN [None]
  - VISUAL IMPAIRMENT [None]
  - MEDICAL DEVICE COMPLICATION [None]
  - MUSCLE SPASMS [None]
  - DRUG WITHDRAWAL SYNDROME [None]
